FAERS Safety Report 18271659 (Version 1)
Quarter: 2020Q3

REPORT INFORMATION
  Report Type: Spontaneous
  Country: US (occurrence: US)
  Receive Date: 20200915
  Receipt Date: 20200915
  Transmission Date: 20201103
  Serious: Yes (Death, Other)
  Sender: FDA-Public Use
  Company Number: None

PATIENT
  Age: 45 Year
  Sex: Female
  Weight: 63 kg

DRUGS (7)
  1. REMDESIVIR. [Suspect]
     Active Substance: REMDESIVIR
     Indication: COVID-19
     Dates: start: 20200912, end: 20200913
  2. AMPHOTERICIN B. [Concomitant]
     Active Substance: AMPHOTERICIN B
     Dates: start: 20200913, end: 20200915
  3. AMIODARONE [Concomitant]
     Active Substance: AMIODARONE
     Dates: start: 20200913, end: 20200915
  4. LIDOCAINE. [Concomitant]
     Active Substance: LIDOCAINE
     Dates: start: 20200913, end: 20200915
  5. NOREPINEPHRINE. [Concomitant]
     Active Substance: NOREPINEPHRINE
     Dates: start: 20200912, end: 20200915
  6. VANCOMYCIN [Concomitant]
     Active Substance: VANCOMYCIN
     Dates: start: 20200910, end: 20200915
  7. VASOPRESSIN. [Concomitant]
     Active Substance: VASOPRESSIN
     Dates: start: 20200912, end: 20200915

REACTIONS (7)
  - Shock [None]
  - Fungal infection [None]
  - Disseminated intravascular coagulation [None]
  - Ventricular tachycardia [None]
  - Cardiac arrest [None]
  - Liver function test increased [None]
  - Acute kidney injury [None]

NARRATIVE: CASE EVENT DATE: 20200915
